FAERS Safety Report 19982487 (Version 1)
Quarter: 2021Q4

REPORT INFORMATION
  Report Type: Spontaneous
  Country: US (occurrence: US)
  Receive Date: 20211021
  Receipt Date: 20211021
  Transmission Date: 20220303
  Serious: Yes (Other)
  Sender: FDA-Public Use
  Company Number: US-GLAXOSMITHKLINE-US2021GSK218487

PATIENT
  Sex: Female

DRUGS (81)
  1. RANITIDINE [Suspect]
     Active Substance: RANITIDINE
     Indication: Dyspepsia
     Dosage: UNK UNK, QD
     Route: 065
     Dates: start: 198007, end: 198709
  2. RANITIDINE [Suspect]
     Active Substance: RANITIDINE
     Indication: Dyspepsia
  3. RANITIDINE [Suspect]
     Active Substance: RANITIDINE
     Indication: Hyperchlorhydria
  4. RANITIDINE [Suspect]
     Active Substance: RANITIDINE
     Indication: Dyspepsia
  5. RANITIDINE [Suspect]
     Active Substance: RANITIDINE
     Indication: Abdominal discomfort
  6. RANITIDINE [Suspect]
     Active Substance: RANITIDINE
     Indication: Gastric ulcer
  7. RANITIDINE [Suspect]
     Active Substance: RANITIDINE
     Indication: Intestinal ulcer
  8. RANITIDINE [Suspect]
     Active Substance: RANITIDINE
     Indication: Erosive oesophagitis
  9. RANITIDINE [Suspect]
     Active Substance: RANITIDINE
     Indication: Gastrooesophageal reflux disease
  10. ZANTAC [Suspect]
     Active Substance: RANITIDINE HYDROCHLORIDE
     Indication: Dyspepsia
     Dosage: UNK UNK, QD
     Route: 065
     Dates: start: 198001, end: 198701
  11. ZANTAC [Suspect]
     Active Substance: RANITIDINE HYDROCHLORIDE
     Indication: Dyspepsia
  12. ZANTAC [Suspect]
     Active Substance: RANITIDINE HYDROCHLORIDE
     Indication: Hyperchlorhydria
  13. ZANTAC [Suspect]
     Active Substance: RANITIDINE HYDROCHLORIDE
     Indication: Dyspepsia
  14. ZANTAC [Suspect]
     Active Substance: RANITIDINE HYDROCHLORIDE
     Indication: Abdominal discomfort
  15. ZANTAC [Suspect]
     Active Substance: RANITIDINE HYDROCHLORIDE
     Indication: Gastric ulcer
  16. ZANTAC [Suspect]
     Active Substance: RANITIDINE HYDROCHLORIDE
     Indication: Intestinal ulcer
  17. ZANTAC [Suspect]
     Active Substance: RANITIDINE HYDROCHLORIDE
     Indication: Erosive oesophagitis
  18. ZANTAC [Suspect]
     Active Substance: RANITIDINE HYDROCHLORIDE
     Indication: Gastrooesophageal reflux disease
  19. ZANTAC [Suspect]
     Active Substance: RANITIDINE HYDROCHLORIDE
     Indication: Dyspepsia
     Dosage: UNK UNK, QD
     Route: 065
     Dates: start: 198001, end: 198701
  20. ZANTAC [Suspect]
     Active Substance: RANITIDINE HYDROCHLORIDE
     Indication: Dyspepsia
  21. ZANTAC [Suspect]
     Active Substance: RANITIDINE HYDROCHLORIDE
     Indication: Hyperchlorhydria
  22. ZANTAC [Suspect]
     Active Substance: RANITIDINE HYDROCHLORIDE
     Indication: Dyspepsia
  23. ZANTAC [Suspect]
     Active Substance: RANITIDINE HYDROCHLORIDE
     Indication: Abdominal discomfort
  24. ZANTAC [Suspect]
     Active Substance: RANITIDINE HYDROCHLORIDE
     Indication: Gastric ulcer
  25. ZANTAC [Suspect]
     Active Substance: RANITIDINE HYDROCHLORIDE
     Indication: Intestinal ulcer
  26. ZANTAC [Suspect]
     Active Substance: RANITIDINE HYDROCHLORIDE
     Indication: Erosive oesophagitis
  27. ZANTAC [Suspect]
     Active Substance: RANITIDINE HYDROCHLORIDE
     Indication: Gastrooesophageal reflux disease
  28. ZANTAC [Suspect]
     Active Substance: RANITIDINE HYDROCHLORIDE
     Indication: Dyspepsia
     Dosage: UNK UNK, QD
     Route: 065
     Dates: start: 198001, end: 198701
  29. ZANTAC [Suspect]
     Active Substance: RANITIDINE HYDROCHLORIDE
     Indication: Dyspepsia
  30. ZANTAC [Suspect]
     Active Substance: RANITIDINE HYDROCHLORIDE
     Indication: Hyperchlorhydria
  31. ZANTAC [Suspect]
     Active Substance: RANITIDINE HYDROCHLORIDE
     Indication: Dyspepsia
  32. ZANTAC [Suspect]
     Active Substance: RANITIDINE HYDROCHLORIDE
     Indication: Abdominal discomfort
  33. ZANTAC [Suspect]
     Active Substance: RANITIDINE HYDROCHLORIDE
     Indication: Gastric ulcer
  34. ZANTAC [Suspect]
     Active Substance: RANITIDINE HYDROCHLORIDE
     Indication: Intestinal ulcer
  35. ZANTAC [Suspect]
     Active Substance: RANITIDINE HYDROCHLORIDE
     Indication: Erosive oesophagitis
  36. ZANTAC [Suspect]
     Active Substance: RANITIDINE HYDROCHLORIDE
     Indication: Gastrooesophageal reflux disease
  37. RANITIDINE [Suspect]
     Active Substance: RANITIDINE
     Indication: Dyspepsia
     Dosage: UNK UNK, QD
     Route: 065
     Dates: start: 199001, end: 200001
  38. RANITIDINE [Suspect]
     Active Substance: RANITIDINE
     Indication: Dyspepsia
  39. RANITIDINE [Suspect]
     Active Substance: RANITIDINE
     Indication: Hyperchlorhydria
  40. RANITIDINE [Suspect]
     Active Substance: RANITIDINE
     Indication: Dyspepsia
  41. RANITIDINE [Suspect]
     Active Substance: RANITIDINE
     Indication: Abdominal discomfort
  42. RANITIDINE [Suspect]
     Active Substance: RANITIDINE
     Indication: Gastric ulcer
  43. RANITIDINE [Suspect]
     Active Substance: RANITIDINE
     Indication: Intestinal ulcer
  44. RANITIDINE [Suspect]
     Active Substance: RANITIDINE
     Indication: Erosive oesophagitis
  45. RANITIDINE [Suspect]
     Active Substance: RANITIDINE
     Indication: Gastrooesophageal reflux disease
  46. ZANTAC [Suspect]
     Active Substance: RANITIDINE HYDROCHLORIDE
     Indication: Dyspepsia
     Dosage: UNK UNK, QD
     Route: 065
     Dates: start: 198006, end: 198711
  47. ZANTAC [Suspect]
     Active Substance: RANITIDINE HYDROCHLORIDE
     Indication: Dyspepsia
  48. ZANTAC [Suspect]
     Active Substance: RANITIDINE HYDROCHLORIDE
     Indication: Hyperchlorhydria
  49. ZANTAC [Suspect]
     Active Substance: RANITIDINE HYDROCHLORIDE
     Indication: Dyspepsia
  50. ZANTAC [Suspect]
     Active Substance: RANITIDINE HYDROCHLORIDE
     Indication: Abdominal discomfort
  51. ZANTAC [Suspect]
     Active Substance: RANITIDINE HYDROCHLORIDE
     Indication: Gastric ulcer
  52. ZANTAC [Suspect]
     Active Substance: RANITIDINE HYDROCHLORIDE
     Indication: Intestinal ulcer
  53. ZANTAC [Suspect]
     Active Substance: RANITIDINE HYDROCHLORIDE
     Indication: Erosive oesophagitis
  54. ZANTAC [Suspect]
     Active Substance: RANITIDINE HYDROCHLORIDE
     Indication: Gastrooesophageal reflux disease
  55. RANITIDINE [Suspect]
     Active Substance: RANITIDINE
     Indication: Dyspepsia
     Dosage: UNK, QD
     Route: 065
     Dates: start: 199001, end: 200001
  56. RANITIDINE [Suspect]
     Active Substance: RANITIDINE
     Indication: Dyspepsia
  57. RANITIDINE [Suspect]
     Active Substance: RANITIDINE
     Indication: Hyperchlorhydria
  58. RANITIDINE [Suspect]
     Active Substance: RANITIDINE
     Indication: Dyspepsia
  59. RANITIDINE [Suspect]
     Active Substance: RANITIDINE
     Indication: Abdominal discomfort
  60. RANITIDINE [Suspect]
     Active Substance: RANITIDINE
     Indication: Gastric ulcer
  61. RANITIDINE [Suspect]
     Active Substance: RANITIDINE
     Indication: Intestinal ulcer
  62. RANITIDINE [Suspect]
     Active Substance: RANITIDINE
     Indication: Erosive oesophagitis
  63. RANITIDINE [Suspect]
     Active Substance: RANITIDINE
     Indication: Gastrooesophageal reflux disease
  64. RANITIDINE [Suspect]
     Active Substance: RANITIDINE
     Indication: Dyspepsia
     Dosage: UNK, QD
     Route: 065
     Dates: start: 199001, end: 200001
  65. RANITIDINE [Suspect]
     Active Substance: RANITIDINE
     Indication: Dyspepsia
  66. RANITIDINE [Suspect]
     Active Substance: RANITIDINE
     Indication: Hyperchlorhydria
  67. RANITIDINE [Suspect]
     Active Substance: RANITIDINE
     Indication: Dyspepsia
  68. RANITIDINE [Suspect]
     Active Substance: RANITIDINE
     Indication: Abdominal discomfort
  69. RANITIDINE [Suspect]
     Active Substance: RANITIDINE
     Indication: Gastric ulcer
  70. RANITIDINE [Suspect]
     Active Substance: RANITIDINE
     Indication: Intestinal ulcer
  71. RANITIDINE [Suspect]
     Active Substance: RANITIDINE
     Indication: Erosive oesophagitis
  72. RANITIDINE [Suspect]
     Active Substance: RANITIDINE
     Indication: Gastrooesophageal reflux disease
  73. RANITIDINE [Suspect]
     Active Substance: RANITIDINE
     Indication: Dyspepsia
     Dosage: UNK, QD
     Route: 065
     Dates: start: 199001, end: 200001
  74. RANITIDINE [Suspect]
     Active Substance: RANITIDINE
     Indication: Dyspepsia
  75. RANITIDINE [Suspect]
     Active Substance: RANITIDINE
     Indication: Hyperchlorhydria
  76. RANITIDINE [Suspect]
     Active Substance: RANITIDINE
     Indication: Dyspepsia
  77. RANITIDINE [Suspect]
     Active Substance: RANITIDINE
     Indication: Abdominal discomfort
  78. RANITIDINE [Suspect]
     Active Substance: RANITIDINE
     Indication: Gastric ulcer
  79. RANITIDINE [Suspect]
     Active Substance: RANITIDINE
     Indication: Intestinal ulcer
  80. RANITIDINE [Suspect]
     Active Substance: RANITIDINE
     Indication: Erosive oesophagitis
  81. RANITIDINE [Suspect]
     Active Substance: RANITIDINE
     Indication: Gastrooesophageal reflux disease

REACTIONS (1)
  - Breast cancer [Unknown]
